FAERS Safety Report 8405752-1 (Version None)
Quarter: 2012Q2

REPORT INFORMATION
  Report Type: 
  Country: None (occurrence: None)
  Receive Date: 20120323
  Receipt Date: 20110511
  Transmission Date: 20120825
  Serious: Yes (Life-Threatening)
  Sender: FDA-Public Use
  Company Number: 163-21880-11051521

PATIENT
  Age: 70 Year
  Sex: Female

DRUGS (1)
  1. REVLIMID [Suspect]
     Indication: MULTIPLE MYELOMA
     Dosage: 10 MG, QD X 14D Q21 D, PO
     Route: 047
     Dates: start: 20110415, end: 20110425

REACTIONS (2)
  - FEBRILE NEUTROPENIA [None]
  - DRUG INTOLERANCE [None]
